FAERS Safety Report 4899493-5 (Version None)
Quarter: 2006Q1

REPORT INFORMATION
  Report Type: 
  Country: None (occurrence: None)
  Receive Date: 20060118
  Receipt Date: 20050531
  Transmission Date: 20060701
  Serious: No
  Sender: FDA-Public Use
  Company Number: 2005001012

PATIENT
  Sex: Female

DRUGS (1)
  1. TARCEVA [Suspect]
     Indication: LUNG NEOPLASM MALIGNANT
     Dosage: 50 MG (QD), ORAL
     Route: 048

REACTIONS (4)
  - DRY EYE [None]
  - EYE PAIN [None]
  - RASH [None]
  - SOMNOLENCE [None]
